FAERS Safety Report 22623585 (Version 3)
Quarter: 2025Q3

REPORT INFORMATION
  Report Type: Spontaneous
  Country: EU (occurrence: EU)
  Receive Date: 20230621
  Receipt Date: 20250807
  Transmission Date: 20251021
  Serious: Yes (Other)
  Sender: AUROBINDO
  Company Number: EU-ORGANON-O2305CZE002852

PATIENT
  Sex: Male

DRUGS (5)
  1. EZETIMIBE [Suspect]
     Active Substance: EZETIMIBE
     Indication: Type IIa hyperlipidaemia
     Route: 048
     Dates: start: 2017, end: 2019
  2. ROSUVASTATIN [Suspect]
     Active Substance: ROSUVASTATIN
     Indication: Type IIa hyperlipidaemia
     Route: 065
     Dates: start: 2017
  3. ROSUVASTATIN [Suspect]
     Active Substance: ROSUVASTATIN
     Route: 065
     Dates: start: 2020, end: 2022
  4. ALIROCUMAB [Concomitant]
     Active Substance: ALIROCUMAB
     Indication: Type IIa hyperlipidaemia
     Route: 065
  5. ALIROCUMAB [Concomitant]
     Active Substance: ALIROCUMAB
     Route: 065

REACTIONS (3)
  - Gastrointestinal malformation [Unknown]
  - Blood creatine phosphokinase increased [Unknown]
  - Drug intolerance [Unknown]

NARRATIVE: CASE EVENT DATE: 20190101
